FAERS Safety Report 15282846 (Version 2)
Quarter: 2018Q3

REPORT INFORMATION
  Report Type: Spontaneous
  Country: US (occurrence: US)
  Receive Date: 20180816
  Receipt Date: 20180830
  Transmission Date: 20181010
  Serious: Yes (Life-Threatening, Hospitalization, Other)
  Sender: FDA-Public Use
  Company Number: US-DRREDDYS-USA/USA/18/0103036

PATIENT
  Age: 63 Year
  Sex: Female
  Weight: 55.6 kg

DRUGS (14)
  1. AMBIEN [Concomitant]
     Active Substance: ZOLPIDEM TARTRATE
     Indication: INSOMNIA
     Route: 065
     Dates: start: 20150101
  2. LEVOTHYROXINE. [Concomitant]
     Active Substance: LEVOTHYROXINE
     Indication: BLOOD THYROID STIMULATING HORMONE INCREASED
     Route: 065
     Dates: start: 20180316
  3. PACLITAXEL. [Concomitant]
     Active Substance: PACLITAXEL
     Indication: OVARIAN CANCER
     Route: 042
     Dates: start: 20170127, end: 20170722
  4. OXYCODONE [Concomitant]
     Active Substance: OXYCODONE
     Indication: DYSURIA
     Route: 065
     Dates: start: 20171222
  5. MIRALAX [Concomitant]
     Active Substance: POLYETHYLENE GLYCOL 3350
     Indication: CONSTIPATION
     Route: 065
     Dates: start: 20180102
  6. CALCIUM [Concomitant]
     Active Substance: CALCIUM
     Indication: DYSURIA
     Route: 065
     Dates: start: 20180522
  7. AUGMENTIN [Suspect]
     Active Substance: AMOXICILLIN\CLAVULANATE POTASSIUM
     Indication: IMPETIGO
     Dosage: 500/125
     Route: 048
     Dates: start: 20180719, end: 20180726
  8. LORAZEPAM. [Concomitant]
     Active Substance: LORAZEPAM
     Indication: ANXIETY
     Route: 065
     Dates: start: 20180102
  9. QUERCITIN [Concomitant]
     Indication: DYSURIA
     Route: 065
     Dates: start: 20180105
  10. D?MANNOSE [Concomitant]
     Indication: DYSURIA
     Route: 065
     Dates: start: 20180105
  11. CARBOPLATIN. [Concomitant]
     Active Substance: CARBOPLATIN
     Indication: OVARIAN CANCER
     Route: 042
     Dates: start: 20170127, end: 20170722
  12. PARACETAMOL [Concomitant]
     Active Substance: ACETAMINOPHEN
     Indication: PYREXIA
     Route: 065
     Dates: start: 20180728, end: 20180801
  13. PHOSPHORUS [Concomitant]
     Active Substance: PHOSPHORUS
     Indication: DYSURIA
     Route: 065
     Dates: start: 20180522
  14. BACTROBAN [Concomitant]
     Active Substance: MUPIROCIN\MUPIROCIN CALCIUM
     Indication: IMPETIGO
     Route: 065
     Dates: start: 20180719

REACTIONS (8)
  - Anaphylactic shock [Recovered/Resolved]
  - Venous thrombosis [Not Recovered/Not Resolved]
  - Urinary tract infection [Recovered/Resolved]
  - Atrial fibrillation [Recovered/Resolved]
  - Pyrexia [Recovering/Resolving]
  - Hypotension [Not Recovered/Not Resolved]
  - Rash [Recovering/Resolving]
  - Drug eruption [Not Recovered/Not Resolved]

NARRATIVE: CASE EVENT DATE: 20180727
